FAERS Safety Report 8445286-1 (Version None)
Quarter: 2012Q2

REPORT INFORMATION
  Report Type: 
  Country: None (occurrence: None)
  Receive Date: 20120618
  Receipt Date: 20120613
  Transmission Date: 20120825
  Serious: Yes (Life-Threatening)
  Sender: FDA-Public Use
  Company Number: DK-BRISTOL-MYERS SQUIBB COMPANY-16683674

PATIENT
  Age: 20 Year
  Sex: Female

DRUGS (2)
  1. ABILIFY [Suspect]
     Indication: SCHIZOPHRENIA
     Dosage: STYRKE: 30 MG
  2. SEROQUEL [Suspect]
     Indication: SCHIZOPHRENIA
     Dosage: SEROQUEL PROLONG-RELEASE TABS
     Dates: start: 20110103

REACTIONS (1)
  - PULMONARY EMBOLISM [None]
